FAERS Safety Report 23615695 (Version 2)
Quarter: 2024Q2

REPORT INFORMATION
  Report Type: Spontaneous
  Country: CH (occurrence: CH)
  Receive Date: 20240311
  Receipt Date: 20240610
  Transmission Date: 20240716
  Serious: Yes (Other)
  Sender: FDA-Public Use
  Company Number: CH-BRISTOL-MYERS SQUIBB COMPANY-2024-037873

PATIENT
  Age: 82 Year
  Sex: Male

DRUGS (5)
  1. NIVOLUMAB [Suspect]
     Active Substance: NIVOLUMAB
     Indication: Choroid melanoma
     Dosage: 4 CYCLES
     Dates: start: 20220413, end: 20220615
  2. NIVOLUMAB [Suspect]
     Active Substance: NIVOLUMAB
     Dosage: 4 CYCLES
     Dates: start: 20220706, end: 20230712
  3. NIVOLUMAB [Suspect]
     Active Substance: NIVOLUMAB
     Dates: start: 20230726
  4. IPILIMUMAB [Suspect]
     Active Substance: IPILIMUMAB
     Indication: Choroid melanoma
     Dosage: 4 CYCLES
     Dates: start: 20220413, end: 20220615
  5. IPILIMUMAB [Suspect]
     Active Substance: IPILIMUMAB
     Dosage: 4 CYCLES
     Dates: start: 20230726

REACTIONS (3)
  - Skin toxicity [Unknown]
  - Malignant neoplasm progression [Unknown]
  - Gallbladder disorder [Unknown]

NARRATIVE: CASE EVENT DATE: 20230101
